FAERS Safety Report 12757881 (Version 2)
Quarter: 2016Q4

REPORT INFORMATION
  Report Type: Spontaneous
  Country: US (occurrence: US)
  Receive Date: 20160919
  Receipt Date: 20161121
  Transmission Date: 20170207
  Serious: No
  Sender: FDA-Public Use
  Company Number: US-PFIZER INC-2016434255

PATIENT
  Age: 55 Year
  Sex: Female

DRUGS (1)
  1. XELJANZ XR [Suspect]
     Active Substance: TOFACITINIB CITRATE
     Indication: RHEUMATOID ARTHRITIS
     Dosage: 11 MG, UNK

REACTIONS (1)
  - Constipation [Unknown]

NARRATIVE: CASE EVENT DATE: 20160914
